FAERS Safety Report 5389209-0 (Version None)
Quarter: 2007Q3

REPORT INFORMATION
  Report Type: 
  Country: None (occurrence: None)
  Receive Date: 20070717
  Receipt Date: 20070713
  Transmission Date: 20080115
  Serious: Yes (Death)
  Sender: FDA-Public Use
  Company Number: US-BAYER-200610670BWH

PATIENT
  Age: 77 Year
  Sex: Female

DRUGS (2)
  1. SORAFENIB [Suspect]
     Indication: METASTATIC RENAL CELL CARCINOMA
     Dosage: TOTAL DAILY DOSE: 800 MG  UNIT DOSE: 200 MG
     Route: 048
     Dates: start: 20051215
  2. PREDNISONE [Concomitant]

REACTIONS (7)
  - ASTHENIA [None]
  - BLOOD PRESSURE INCREASED [None]
  - BLOOD PRESSURE SYSTOLIC INCREASED [None]
  - DYSPNOEA [None]
  - NAUSEA [None]
  - RASH [None]
  - RENAL CELL CARCINOMA STAGE UNSPECIFIED [None]
